FAERS Safety Report 22136349 (Version 2)
Quarter: 2023Q2

REPORT INFORMATION
  Report Type: Report from Study
  Country: CN (occurrence: CN)
  Receive Date: 20230324
  Receipt Date: 20230417
  Transmission Date: 20230721
  Serious: Yes (Other)
  Sender: FDA-Public Use
  Company Number: CN-ASTELLAS-2023US006712

PATIENT
  Age: 60 Year
  Sex: Female
  Weight: 54 kg

DRUGS (12)
  1. ISAVUCONAZOLE [Suspect]
     Active Substance: ISAVUCONAZOLE
     Indication: Fungal infection
     Route: 042
     Dates: start: 20230210, end: 20230210
  2. ISAVUCONAZOLE [Suspect]
     Active Substance: ISAVUCONAZOLE
     Indication: Fungal infection
     Route: 048
     Dates: start: 20230212
  3. CEFTIZOXIME [Concomitant]
     Active Substance: CEFTIZOXIME
     Indication: Infection
     Dosage: UNK UNK, UNKNOWN FREQ.
     Route: 042
     Dates: start: 20230130, end: 20230212
  4. MOXIFLOXACIN HYDROCHLORIDE [Concomitant]
     Active Substance: MOXIFLOXACIN HYDROCHLORIDE
     Indication: Product used for unknown indication
     Dosage: UNK UNK, UNKNOWN FREQ.
     Route: 042
     Dates: start: 20230130, end: 20230209
  5. ACETYL [Concomitant]
     Indication: Asthma
     Dosage: UNK UNK, UNKNOWN FREQ.
     Route: 050
     Dates: start: 20230130, end: 20230213
  6. ACETYL [Concomitant]
     Indication: Productive cough
  7. BUDESONIDE [Concomitant]
     Active Substance: BUDESONIDE
     Indication: Asthma
     Dosage: UNK UNK, UNKNOWN FREQ.
     Route: 050
     Dates: start: 20230130, end: 20230213
  8. BUDESONIDE [Concomitant]
     Active Substance: BUDESONIDE
     Indication: Productive cough
  9. HEPARIN SODIUM [Concomitant]
     Active Substance: HEPARIN SODIUM
     Indication: Anticoagulant therapy
     Dosage: UNK UNK, UNKNOWN FREQ.
     Route: 041
     Dates: start: 20230213, end: 20230213
  10. ALDESLEUKIN [Concomitant]
     Active Substance: ALDESLEUKIN
     Indication: Acute myeloid leukaemia
     Dosage: TEN THOUSAND U, ONCE DAILY (ALSO REPORTED AS ONGOING)
     Route: 041
     Dates: start: 20230127, end: 20230217
  11. MAGNESIUM ISOGLYCYRRHIZINATE [Concomitant]
     Active Substance: MAGNESIUM ISOGLYCYRRHIZINATE
     Indication: Prophylaxis
     Dosage: UNK UNK, UNKNOWN FREQ.
     Route: 041
     Dates: start: 20230212, end: 20230217
  12. DEXAMETHASONE SODIUM PHOSPHATE [Concomitant]
     Active Substance: DEXAMETHASONE SODIUM PHOSPHATE
     Indication: Hypersensitivity
     Dosage: UNK UNK, UNKNOWN FREQ.
     Route: 041
     Dates: start: 20230127, end: 20230217

REACTIONS (1)
  - Drug-induced liver injury [Recovered/Resolved]

NARRATIVE: CASE EVENT DATE: 20230213
